FAERS Safety Report 8431191-3 (Version None)
Quarter: 2012Q2

REPORT INFORMATION
  Report Type: 
  Country: None (occurrence: None)
  Receive Date: 20120612
  Receipt Date: 20120608
  Transmission Date: 20120825
  Serious: Yes (Other)
  Sender: FDA-Public Use
  Company Number: CHPA2012US011979

PATIENT
  Age: 73 Year
  Sex: Female

DRUGS (1)
  1. VOLTAREN [Suspect]
     Indication: ARTHRITIS
     Dosage: UNK, UNK
     Route: 061

REACTIONS (2)
  - BREAST CANCER [None]
  - THERAPEUTIC RESPONSE DECREASED [None]
